FAERS Safety Report 6129564-7 (Version None)
Quarter: 2009Q1

REPORT INFORMATION
  Report Type: 
  Country: None (occurrence: None)
  Receive Date: 20090320
  Receipt Date: 20090317
  Transmission Date: 20090719
  Serious: Yes (Life-Threatening, Hospitalization)
  Sender: FDA-Public Use
  Company Number: 2009SP005770

PATIENT
  Age: 49 Year
  Sex: Male

DRUGS (2)
  1. TEMODAL [Suspect]
     Indication: GLIOMA
     Dosage: 400 MG; PO
     Route: 048
  2. TEMODAL [Suspect]
     Indication: NEOPLASM RECURRENCE
     Dosage: 400 MG; PO
     Route: 048

REACTIONS (2)
  - FULL BLOOD COUNT DECREASED [None]
  - HAEMORRHAGE INTRACRANIAL [None]
